FAERS Safety Report 7337709-6 (Version None)
Quarter: 2011Q1

REPORT INFORMATION
  Report Type: 
  Country: None (occurrence: None)
  Receive Date: 20110308
  Receipt Date: 20110301
  Transmission Date: 20110831
  Serious: Yes (Death, Other)
  Sender: FDA-Public Use
  Company Number: ES-GENZYME-CAMP-1001432

PATIENT

DRUGS (2)
  1. CAMPATH [Suspect]
     Indication: LYMPHOPROLIFERATIVE DISORDER
     Dosage: 426 MG, UNK
     Route: 065
  2. FAMCICLOVIR [Concomitant]
     Indication: ANTIVIRAL PROPHYLAXIS

REACTIONS (3)
  - PYREXIA [None]
  - HEPATITIS [None]
  - CYTOMEGALOVIRUS INFECTION [None]
